FAERS Safety Report 15606495 (Version 1)
Quarter: 2018Q4

REPORT INFORMATION
  Report Type: Spontaneous
  Country: SE (occurrence: SE)
  Receive Date: 20181112
  Receipt Date: 20181112
  Transmission Date: 20190205
  Serious: Yes (Disabling)
  Sender: FDA-Public Use
  Company Number: SE-BRISTOL-MYERS SQUIBB COMPANY-BMS-2018-104025

PATIENT
  Age: 59 Year
  Sex: Female
  Weight: 80 kg

DRUGS (2)
  1. ELIQUIS [Suspect]
     Active Substance: APIXABAN
     Indication: PRODUCT USED FOR UNKNOWN INDICATION
     Dosage: DURG INTERVAL DOSAGE UNIT NUMBER 1 DAY
     Route: 065
     Dates: start: 20180916, end: 201810
  2. ELIQUIS [Suspect]
     Active Substance: APIXABAN
     Indication: PULMONARY EMBOLISM
     Dosage: DURG INTERVAL DOSAGE UNIT NUMBER 1 DAY
     Route: 065
     Dates: start: 201512, end: 201801

REACTIONS (3)
  - Impaired healing [Unknown]
  - Nocturia [Unknown]
  - Oedema [Unknown]

NARRATIVE: CASE EVENT DATE: 2018
